FAERS Safety Report 4784043-4 (Version None)
Quarter: 2005Q3

REPORT INFORMATION
  Report Type: 
  Country: None (occurrence: None)
  Receive Date: 20050930
  Receipt Date: 20050922
  Transmission Date: 20060218
  Serious: Yes (Other)
  Sender: FDA-Public Use
  Company Number: 2005UW14090

PATIENT
  Age: 26 Year
  Sex: Female

DRUGS (3)
  1. SEROQUEL [Suspect]
     Route: 048
  2. ACETAMINOPHEN [Suspect]
  3. SERTRALINE HCL [Concomitant]

REACTIONS (11)
  - ALANINE AMINOTRANSFERASE INCREASED [None]
  - ASPARTATE AMINOTRANSFERASE INCREASED [None]
  - BLOOD ALKALINE PHOSPHATASE INCREASED [None]
  - DRUG EXPOSURE DURING PREGNANCY [None]
  - HYPERBILIRUBINAEMIA [None]
  - HYPOTENSION [None]
  - INTENTIONAL MISUSE [None]
  - OVERDOSE [None]
  - PROTHROMBIN TIME PROLONGED [None]
  - SEDATION [None]
  - TACHYCARDIA [None]
